FAERS Safety Report 9123012 (Version 1)
Quarter: 2013Q1

REPORT INFORMATION
  Report Type: Spontaneous
  Country: US (occurrence: US)
  Receive Date: 20130114
  Receipt Date: 20130114
  Transmission Date: 20140127
  Serious: Yes (Other)
  Sender: FDA-Public Use
  Company Number: US-SANOFI-AVENTIS-2013SA000813

PATIENT
  Age: 36 Year
  Sex: Female

DRUGS (14)
  1. PLAQUENIL [Suspect]
     Route: 065
     Dates: end: 2012
  2. ALL OTHER THERAPEUTIC PRODUCTS [Suspect]
     Indication: SYSTEMIC LUPUS ERYTHEMATOSUS
     Route: 041
     Dates: start: 201006, end: 201210
  3. ZOFRAN [Suspect]
     Indication: PROPHYLAXIS
     Route: 065
     Dates: end: 2012
  4. IMURAN [Suspect]
     Route: 065
     Dates: end: 2012
  5. FLUTICASONE W/SALMETEROL [Concomitant]
  6. ASPIRIN [Concomitant]
  7. INSULIN ASPART [Concomitant]
  8. MULTIVITAMINS [Concomitant]
  9. DIPHENHYDRAMINE [Concomitant]
  10. CALCIUM CARBONATE [Concomitant]
  11. IBUPROFEN [Concomitant]
  12. ASCORBIC ACID [Concomitant]
  13. VITAMIN D [Concomitant]
  14. MEDROL [Concomitant]

REACTIONS (13)
  - Pneumonia [Not Recovered/Not Resolved]
  - Systemic lupus erythematosus [Not Recovered/Not Resolved]
  - Gastric haemorrhage [Not Recovered/Not Resolved]
  - Crohn^s disease [Not Recovered/Not Resolved]
  - Influenza [Not Recovered/Not Resolved]
  - Bronchitis [Not Recovered/Not Resolved]
  - Pleurisy [Not Recovered/Not Resolved]
  - Bone pain [Not Recovered/Not Resolved]
  - Weight decreased [Not Recovered/Not Resolved]
  - Weight increased [Unknown]
  - White blood cell count decreased [Not Recovered/Not Resolved]
  - Nausea [Not Recovered/Not Resolved]
  - Anaemia [Not Recovered/Not Resolved]
